FAERS Safety Report 9644954 (Version 1)
Quarter: 2013Q4

REPORT INFORMATION
  Report Type: Spontaneous
  Country: US (occurrence: US)
  Receive Date: 20131025
  Receipt Date: 20131025
  Transmission Date: 20140711
  Serious: No
  Sender: FDA-Public Use
  Company Number: US-PFIZER INC-2013304724

PATIENT
  Age: 53 Year
  Sex: Female
  Weight: 71.66 kg

DRUGS (7)
  1. CHANTIX [Suspect]
     Indication: SMOKING CESSATION THERAPY
     Dosage: UNK
     Dates: start: 2007, end: 2007
  2. SYMBICORT [Concomitant]
     Dosage: 90 MG, 1X/DAY
  3. SPIRIVA [Concomitant]
     Dosage: UNK
  4. CYMBALTA [Concomitant]
     Indication: DEPRESSION
     Dosage: 30 MG, 3X/DAY
  5. WELLBUTRIN [Concomitant]
     Indication: DEPRESSION
     Dosage: 300 MG, 1X/DAY
  6. ALPRAZOLAM [Concomitant]
     Indication: DEPRESSION
     Dosage: 2 MG, 3X/DAY
  7. ABILIFY [Concomitant]
     Indication: DEPRESSION
     Dosage: 10 MG, 1X/DAY

REACTIONS (2)
  - Nausea [Unknown]
  - Flatulence [Unknown]
